FAERS Safety Report 5270734-8 (Version None)
Quarter: 2007Q1

REPORT INFORMATION
  Report Type: 
  Country: None (occurrence: None)
  Receive Date: 20070319
  Receipt Date: 20070319
  Transmission Date: 20070707
  Serious: No
  Sender: FDA-Public Use
  Company Number: None

PATIENT
  Age: 70 Year
  Sex: Female
  Weight: 61.2356 kg

DRUGS (1)
  1. CLARITHROMYCIN [Suspect]
     Indication: BACTERIAL INFECTION
     Dates: start: 20070302, end: 20070305

REACTIONS (6)
  - ABDOMINAL PAIN UPPER [None]
  - ASTHENIA [None]
  - HEADACHE [None]
  - NAUSEA [None]
  - PAIN [None]
  - ULCER [None]
